FAERS Safety Report 4723525-8 (Version None)
Quarter: 2005Q3

REPORT INFORMATION
  Report Type: 
  Country: None (occurrence: None)
  Receive Date: 20050721
  Receipt Date: 20050721
  Transmission Date: 20060218
  Serious: Yes (Life-Threatening, Hospitalization)
  Sender: FDA-Public Use
  Company Number: None

PATIENT
  Sex: Female
  Weight: 65.7716 kg

DRUGS (2)
  1. ORTHO EVRA [Suspect]
     Indication: CONTRACEPTION
     Dosage: 3 WEEK CYCLE TRANSDERMAL
     Route: 062
     Dates: start: 20050508, end: 20050626
  2. WARFIN [Concomitant]

REACTIONS (1)
  - THROMBOSIS [None]
